FAERS Safety Report 17367527 (Version 1)
Quarter: 2020Q1

REPORT INFORMATION
  Report Type: Spontaneous
  Country: US (occurrence: US)
  Receive Date: 20200203
  Receipt Date: 20200203
  Transmission Date: 20200409
  Serious: Yes (Hospitalization)
  Sender: FDA-Public Use
  Company Number: None

PATIENT
  Age: 22 Year
  Sex: Female
  Weight: 49.5 kg

DRUGS (3)
  1. TOPAMAX 75MG DAILY [Concomitant]
  2. ZYRTEC 10MG DAILY [Concomitant]
  3. AJOVY [Suspect]
     Active Substance: FREMANEZUMAB-VFRM
     Indication: MIGRAINE
     Dosage: ?          QUANTITY:1 INJECTION(S);OTHER FREQUENCY:EVERY MONTH;?
     Route: 058
     Dates: end: 20191220

REACTIONS (4)
  - Full blood count abnormal [None]
  - Dyspnoea [None]
  - Acid base balance abnormal [None]
  - Hypersensitivity [None]

NARRATIVE: CASE EVENT DATE: 20200128
